FAERS Safety Report 11074268 (Version 1)
Quarter: 2015Q2

REPORT INFORMATION
  Report Type: Spontaneous
  Country: CH (occurrence: None)
  Receive Date: 20150427
  Receipt Date: 20150427
  Transmission Date: 20150821
  Serious: Yes (Death)
  Sender: FDA-Public Use
  Company Number: COR_00281_2015

PATIENT
  Age: 24 Month
  Sex: Male

DRUGS (3)
  1. MELPHALAN (MELPHALAN) [Suspect]
     Active Substance: MELPHALAN
     Indication: NEUROBLASTOMA
     Dosage: DAY NEG 7 TO NEG 5
  2. CARBOPLATIN (CARBOPLATIN) [Suspect]
     Active Substance: CARBOPLATIN
     Indication: NEUROBLASTOMA
     Dosage: DAY NEG 7 TO NEG 4
  3. ETOPOSIDE (ETOPOSIDE) [Suspect]
     Active Substance: ETOPOSIDE
     Indication: NEUROBLASTOMA
     Dosage: DAY NEG 7 TO NEG 4

REACTIONS (5)
  - Hyperlactacidaemia [None]
  - Brain oedema [None]
  - Coma [None]
  - Haemodialysis [None]
  - Hyperammonaemic encephalopathy [None]
